FAERS Safety Report 9437455 (Version 2)
Quarter: 2013Q3

REPORT INFORMATION
  Report Type: Spontaneous
  Country: FR (occurrence: None)
  Receive Date: 20130731
  Receipt Date: 20130731
  Transmission Date: 20140515
  Serious: Yes (Hospitalization, Disabling, Other)
  Sender: FDA-Public Use
  Company Number: NGX_01911_2013

PATIENT
  Age: 54 Year
  Sex: Male
  Weight: 70 kg

DRUGS (4)
  1. QUTENZA [Suspect]
     Indication: NEURALGIA
     Route: 061
     Dates: start: 20130117, end: 20130117
  2. AMITRIPTYLINE [Concomitant]
  3. MORPHINE [Concomitant]
  4. LIDOCAINE [Concomitant]

REACTIONS (1)
  - Ischaemic stroke [None]
